FAERS Safety Report 16376529 (Version 1)
Quarter: 2019Q3

REPORT INFORMATION
  Report Type: Spontaneous
  Country: US (occurrence: US)
  Receive Date: 20190530
  Receipt Date: 20190530
  Transmission Date: 20191004
  Serious: Yes (Disabling)
  Sender: FDA-Public Use
  Company Number: None

PATIENT
  Age: 41 Year
  Sex: Female
  Weight: 90 kg

DRUGS (6)
  1. LYRICA [Concomitant]
     Active Substance: PREGABALIN
  2. AIMOVIG [Suspect]
     Active Substance: ERENUMAB-AOOE
     Indication: MIGRAINE
     Dosage: ?          OTHER FREQUENCY:ONCE A MONTH;?
     Route: 058
     Dates: start: 20190508
  3. REMERON [Concomitant]
     Active Substance: MIRTAZAPINE
  4. ELMIRON [Concomitant]
     Active Substance: PENTOSAN POLYSULFATE SODIUM
  5. NUCYNTA [Concomitant]
     Active Substance: TAPENTADOL HYDROCHLORIDE
  6. METOPROLOL. [Concomitant]
     Active Substance: METOPROLOL

REACTIONS (25)
  - Nasopharyngitis [None]
  - Hypertension [None]
  - Nausea [None]
  - Muscle spasms [None]
  - Anxiety [None]
  - Insomnia [None]
  - Kidney infection [None]
  - Arthralgia [None]
  - Back pain [None]
  - Fatigue [None]
  - Drug ineffective [None]
  - Constipation [None]
  - Vomiting [None]
  - Hypoaesthesia [None]
  - Disturbance in attention [None]
  - Suicidal ideation [None]
  - Pruritus generalised [None]
  - Migraine [None]
  - Pain [None]
  - Panic attack [None]
  - Dyspnoea [None]
  - Tachycardia [None]
  - Pyrexia [None]
  - Asthenia [None]
  - Abdominal pain upper [None]

NARRATIVE: CASE EVENT DATE: 20190508
